FAERS Safety Report 11459525 (Version 1)
Quarter: 2015Q3

REPORT INFORMATION
  Report Type: Spontaneous
  Country: US (occurrence: US)
  Receive Date: 20150904
  Receipt Date: 20150904
  Transmission Date: 20151125
  Serious: No
  Sender: FDA-Public Use
  Company Number: US-TARO-2014TAR00473

PATIENT
  Age: 68 Year
  Sex: Female

DRUGS (4)
  1. WARFARIN SODIUM TABLETS USP 5MG [Suspect]
     Active Substance: WARFARIN SODIUM
     Dosage: 15 MG, 1X/DAY
     Route: 048
     Dates: start: 20141001
  2. WARFARIN SODIUM TABLETS USP 5MG [Suspect]
     Active Substance: WARFARIN SODIUM
     Dosage: 7.5 MG, 1X/DAY
     Route: 048
     Dates: start: 201402, end: 201405
  3. WARFARIN SODIUM TABLETS USP 5MG [Suspect]
     Active Substance: WARFARIN SODIUM
     Dosage: 12.5 MG, 1X/DAY
     Route: 048
     Dates: start: 201405, end: 20140811
  4. WARFARIN SODIUM TABLETS USP 5MG [Suspect]
     Active Substance: WARFARIN SODIUM
     Dosage: 5 MG, 1X/DAY
     Route: 048
     Dates: start: 20140812, end: 20140930

REACTIONS (2)
  - Drug ineffective [Not Recovered/Not Resolved]
  - International normalised ratio decreased [Not Recovered/Not Resolved]

NARRATIVE: CASE EVENT DATE: 20140929
